FAERS Safety Report 17994881 (Version 3)
Quarter: 2022Q3

REPORT INFORMATION
  Report Type: Spontaneous
  Country: US (occurrence: US)
  Receive Date: 20200708
  Receipt Date: 20220929
  Transmission Date: 20221027
  Serious: Yes (Other)
  Sender: FDA-Public Use
  Company Number: US-SAARTEMIS-SAC202007060096

PATIENT
  Age: 52 Year
  Sex: Male

DRUGS (2)
  1. ZANTAC [Suspect]
     Active Substance: RANITIDINE HYDROCHLORIDE
     Indication: Dyspepsia
     Dosage: 150 MG, QD
     Dates: start: 201501, end: 202002
  2. ZANTAC [Suspect]
     Active Substance: RANITIDINE HYDROCHLORIDE
     Indication: Hyperchlorhydria

REACTIONS (4)
  - Hepatic cancer [Unknown]
  - Renal cancer stage I [Not Recovered/Not Resolved]
  - Lung carcinoma cell type unspecified stage II [Not Recovered/Not Resolved]
  - Head and neck cancer stage IV [Not Recovered/Not Resolved]

NARRATIVE: CASE EVENT DATE: 20150201
